FAERS Safety Report 6547768-6 (Version None)
Quarter: 2010Q1

REPORT INFORMATION
  Report Type: 
  Country: None (occurrence: None)
  Receive Date: 20100124
  Receipt Date: 20091023
  Transmission Date: 20100710
  Serious: No
  Sender: FDA-Public Use
  Company Number: US-ALEXION-A200900872

PATIENT
  Sex: Female

DRUGS (5)
  1. SOLIRIS [Suspect]
     Indication: PAROXYSMAL NOCTURNAL HAEMOGLOBINURIA
     Dosage: 600 MG, QW X4
     Route: 042
     Dates: start: 20070316, end: 20070401
  2. SOLIRIS [Suspect]
     Dosage: 900 MG, Q2W
     Route: 042
     Dates: start: 20070411
  3. FENTANYL [Concomitant]
     Indication: PAIN
     Dosage: UNK
     Route: 062
  4. PERCOCET [Concomitant]
     Indication: PAIN
     Dosage: UNK
     Route: 048
  5. XANAX [Concomitant]
     Dosage: 0.5 MG, TID, PRN
     Route: 048

REACTIONS (2)
  - BACK PAIN [None]
  - HEADACHE [None]
